FAERS Safety Report 7306117-6 (Version None)
Quarter: 2011Q1

REPORT INFORMATION
  Report Type: 
  Country: None (occurrence: None)
  Receive Date: 20110222
  Receipt Date: 20110208
  Transmission Date: 20110831
  Serious: Yes (Hospitalization, Other)
  Sender: FDA-Public Use
  Company Number: CHPA2011SE02930

PATIENT
  Age: 48 Year
  Sex: Female

DRUGS (4)
  1. FLUOXETINE [Concomitant]
     Dosage: UNK, UNK
     Route: 065
  2. TAVEGYL [Suspect]
     Indication: RASH
     Dosage: UNK, UNK
     Route: 048
     Dates: start: 20100817, end: 20100821
  3. BETAPRED [Suspect]
     Dosage: UNK, UNK
     Route: 065
     Dates: start: 20100817, end: 20100821
  4. LEVOTHYROXINE SODIUM [Concomitant]
     Dosage: UNK, UNK
     Route: 065

REACTIONS (5)
  - DAYDREAMING [None]
  - MOTOR DYSFUNCTION [None]
  - DISTURBANCE IN ATTENTION [None]
  - PSYCHOMOTOR HYPERACTIVITY [None]
  - FATIGUE [None]
